FAERS Safety Report 4961355-2 (Version None)
Quarter: 2006Q2

REPORT INFORMATION
  Report Type: 
  Country: None (occurrence: None)
  Receive Date: 20060403
  Receipt Date: 20051031
  Transmission Date: 20061013
  Serious: Yes (Hospitalization)
  Sender: FDA-Public Use
  Company Number: US-MERCK-0511USA00086

PATIENT
  Age: 48 Year
  Sex: Female
  Weight: 84 kg

DRUGS (22)
  1. VIOXX [Suspect]
     Indication: FIBROMYALGIA
     Route: 048
     Dates: start: 19990923, end: 20010305
  2. VIOXX [Suspect]
     Route: 048
     Dates: start: 20010306, end: 20010801
  3. PRILOSEC [Concomitant]
     Indication: GASTROOESOPHAGEAL REFLUX DISEASE
     Route: 048
  4. PREMARIN [Concomitant]
     Route: 065
     Dates: start: 19750101, end: 20020101
  5. VOLMA [Concomitant]
     Indication: ASTHMA
     Route: 065
  6. PREDNISONE [Concomitant]
     Indication: ASTHMA
     Route: 065
  7. PREDNISONE [Concomitant]
     Indication: BRONCHITIS
     Route: 065
  8. TERAZOL 7 [Concomitant]
     Route: 065
  9. GLUCOPHAGE [Concomitant]
     Route: 065
  10. DIFLUCAN [Concomitant]
     Indication: FUNGAL INFECTION
     Route: 048
  11. SINGULAIR [Concomitant]
     Indication: ASTHMA
     Route: 048
  12. LEVAQUIN [Concomitant]
     Indication: BRONCHITIS
     Route: 048
  13. LEVAQUIN [Concomitant]
     Indication: PNEUMONIA
     Route: 048
  14. HUMALOG [Concomitant]
     Indication: DIABETES MELLITUS
     Route: 065
  15. CAPTOPRIL [Concomitant]
     Route: 048
  16. WELLBUTRIN [Concomitant]
     Indication: DEPRESSION
     Route: 048
  17. EFFEXOR [Concomitant]
     Indication: DEPRESSION
     Route: 065
  18. IMITREX [Concomitant]
     Indication: HEADACHE
     Route: 065
  19. ALPRAZOLAM [Concomitant]
     Indication: ANXIETY
     Route: 048
  20. AUGMENTIN '125' [Concomitant]
     Indication: BRONCHITIS
     Route: 065
  21. AUGMENTIN '125' [Concomitant]
     Indication: PNEUMONIA
     Route: 065
  22. ACTOS [Concomitant]
     Indication: DIABETES MELLITUS
     Route: 048

REACTIONS (29)
  - ADVERSE EVENT [None]
  - ANXIETY [None]
  - BLOOD CHOLESTEROL ABNORMAL [None]
  - BRONCHITIS [None]
  - CARDIAC DISORDER [None]
  - CARDIAC MURMUR [None]
  - CELLULITIS [None]
  - CEREBROVASCULAR ACCIDENT [None]
  - CHEST PAIN [None]
  - DEPRESSION [None]
  - DIABETIC FOOT [None]
  - DIABETIC NEUROPATHY [None]
  - DIABETIC ULCER [None]
  - FUNGAL INFECTION [None]
  - GASTRIC DISORDER [None]
  - GASTROOESOPHAGEAL REFLUX DISEASE [None]
  - GLAUCOMA [None]
  - HEADACHE [None]
  - HYPERSENSITIVITY [None]
  - HYPERTENSION [None]
  - MELANOCYTIC NAEVUS [None]
  - METATARSAL EXCISION [None]
  - OEDEMA [None]
  - PAIN [None]
  - PNEUMONIA [None]
  - RASH [None]
  - SINUSITIS [None]
  - TRANSIENT ISCHAEMIC ATTACK [None]
  - WEIGHT DECREASED [None]
